FAERS Safety Report 6277766-1 (Version None)
Quarter: 2009Q3

REPORT INFORMATION
  Report Type: 
  Country: None (occurrence: None)
  Receive Date: 20090722
  Receipt Date: 20090713
  Transmission Date: 20100115
  Serious: Yes (Hospitalization)
  Sender: FDA-Public Use
  Company Number: B0584819A

PATIENT
  Age: 33 Year
  Sex: Female

DRUGS (4)
  1. BUPROPION HCL [Suspect]
     Dosage: 300MG PER DAY
     Route: 065
  2. QUETIAPINE FUMARATE [Concomitant]
     Dosage: 300MG PER DAY
  3. DIAZEPAM [Concomitant]
     Dosage: 20MG PER DAY
  4. PANTOPRAZOLE SODIUM [Concomitant]

REACTIONS (9)
  - ALTERED STATE OF CONSCIOUSNESS [None]
  - BLOOD CHLORIDE DECREASED [None]
  - BLOOD CORTISOL INCREASED [None]
  - BLOOD OSMOLARITY DECREASED [None]
  - BLOOD SODIUM DECREASED [None]
  - DEPRESSED LEVEL OF CONSCIOUSNESS [None]
  - INAPPROPRIATE ANTIDIURETIC HORMONE SECRETION [None]
  - URINE OSMOLARITY INCREASED [None]
  - URINE SODIUM INCREASED [None]
